FAERS Safety Report 6312914-6 (Version None)
Quarter: 2009Q3

REPORT INFORMATION
  Report Type: 
  Country: None (occurrence: None)
  Receive Date: 20090818
  Receipt Date: 20090810
  Transmission Date: 20100115
  Serious: Yes (Hospitalization, Other)
  Sender: FDA-Public Use
  Company Number: GB-AMGEN-UK305816

PATIENT
  Sex: Male
  Weight: 80 kg

DRUGS (6)
  1. ARANESP [Suspect]
     Indication: ANAEMIA
     Route: 058
     Dates: start: 20050301, end: 20080829
  2. VALACYCLOVIR HCL [Concomitant]
     Route: 048
     Dates: start: 20050418
  3. AZATHIOPRINE [Concomitant]
     Route: 048
     Dates: start: 20070830
  4. PENICILLIN V [Concomitant]
     Route: 048
     Dates: start: 20050124
  5. PREDNISOLONE [Concomitant]
     Route: 048
     Dates: start: 20060223
  6. FOLIC ACID [Concomitant]
     Route: 048
     Dates: start: 20050124

REACTIONS (4)
  - APLASIA PURE RED CELL [None]
  - PYREXIA [None]
  - THERAPEUTIC RESPONSE DECREASED [None]
  - VIRAL INFECTION [None]
